FAERS Safety Report 5196429-7 (Version None)
Quarter: 2006Q4

REPORT INFORMATION
  Report Type: 
  Country: None (occurrence: None)
  Receive Date: 20061226
  Receipt Date: 20061218
  Transmission Date: 20070319
  Serious: Yes (Life-Threatening, Hospitalization, Other)
  Sender: FDA-Public Use
  Company Number: 2006BH015114

PATIENT
  Age: 81 Year
  Sex: Female

DRUGS (1)
  1. EXTRANEAL [Suspect]
     Indication: RENAL FAILURE CHRONIC
     Dosage: 2000 ML; AT BEDTIME; IP
     Route: 032
     Dates: start: 20061118, end: 20061121

REACTIONS (4)
  - CARDIO-RESPIRATORY ARREST [None]
  - HYPERKALAEMIA [None]
  - LOSS OF CONSCIOUSNESS [None]
  - SYNCOPE VASOVAGAL [None]
